FAERS Safety Report 7221762-4 (Version None)
Quarter: 2011Q1

REPORT INFORMATION
  Report Type: 
  Country: None (occurrence: None)
  Receive Date: 20110112
  Receipt Date: 20110106
  Transmission Date: 20110831
  Serious: Yes (Death, Hospitalization)
  Sender: FDA-Public Use
  Company Number: US-JNJFOC-20110101895

PATIENT
  Age: 38 Year
  Sex: Female

DRUGS (10)
  1. DEXTROMETHORPHAN [Suspect]
     Indication: ILL-DEFINED DISORDER
     Route: 048
  2. ZOLPIDEM [Suspect]
     Indication: ILL-DEFINED DISORDER
     Route: 048
  3. PREGABALIN [Suspect]
     Indication: ILL-DEFINED DISORDER
     Route: 048
  4. DIAZEPAM [Suspect]
     Indication: ILL-DEFINED DISORDER
     Route: 048
  5. TOPIRAMATE [Suspect]
     Indication: ILL-DEFINED DISORDER
     Route: 048
  6. DOXYLAMINE [Suspect]
     Indication: ILL-DEFINED DISORDER
     Route: 048
  7. RIZATRIPTAN [Suspect]
     Indication: ILL-DEFINED DISORDER
     Route: 048
  8. HYDROCODONE BITARTRATE AND ACETAMINOPHEN [Suspect]
     Indication: ILL-DEFINED DISORDER
     Route: 048
  9. BENZODIAZEPINE NOS [Suspect]
     Indication: ILL-DEFINED DISORDER
     Route: 048
  10. DULOXETINE [Suspect]
     Indication: ILL-DEFINED DISORDER
     Route: 048

REACTIONS (2)
  - TOXICITY TO VARIOUS AGENTS [None]
  - COMPLETED SUICIDE [None]
